FAERS Safety Report 23679526 (Version 1)
Quarter: 2024Q1

REPORT INFORMATION
  Report Type: Report from Study
  Country: US (occurrence: US)
  Receive Date: 20240327
  Receipt Date: 20240327
  Transmission Date: 20240409
  Serious: Yes (Hospitalization, Other)
  Sender: FDA-Public Use
  Company Number: US-ABBVIE-5691774

PATIENT
  Age: 70 Year
  Sex: Female

DRUGS (2)
  1. SKYRIZI [Suspect]
     Active Substance: RISANKIZUMAB-RZAA
     Indication: Psoriasis
     Route: 058
     Dates: end: 202212
  2. SKYRIZI [Suspect]
     Active Substance: RISANKIZUMAB-RZAA
     Route: 058
     Dates: start: 202403

REACTIONS (7)
  - Haemorrhage [Recovering/Resolving]
  - COVID-19 [Recovering/Resolving]
  - Swelling [Unknown]
  - Liver disorder [Unknown]
  - Vitamin D abnormal [Unknown]
  - Gastrointestinal disorder [Unknown]
  - Blood disorder [Unknown]

NARRATIVE: CASE EVENT DATE: 20221201
